FAERS Safety Report 8960134 (Version 1)
Quarter: 2012Q4

REPORT INFORMATION
  Report Type: 
  Country: US (occurrence: US)
  Receive Date: 20121212
  Receipt Date: 20121212
  Transmission Date: 20130627
  Serious: No
  Sender: FDA-Public Use
  Company Number: US-MYLANLABS-2012S1020592

PATIENT
  Age: 85 Year
  Sex: Female

DRUGS (3)
  1. CLOPIDOGREL TABLETS USP [Suspect]
     Indication: CARDIAC DISORDER
     Route: 048
     Dates: start: 20120907
  2. ISOSORBIDE [Concomitant]
     Indication: CARDIAC DISORDER
     Route: 048
  3. ASA [Concomitant]
     Indication: CARDIAC DISORDER
     Dosage: Baby aspirin
     Route: 048

REACTIONS (1)
  - Fatigue [Not Recovered/Not Resolved]
